FAERS Safety Report 9438100 (Version 1)
Quarter: 2013Q3

REPORT INFORMATION
  Report Type: Spontaneous
  Country: US (occurrence: US)
  Receive Date: 20130802
  Receipt Date: 20130802
  Transmission Date: 20140515
  Serious: No
  Sender: FDA-Public Use
  Company Number: US-BRISTOL-MYERS SQUIBB COMPANY-16828568

PATIENT
  Age: 73 Year
  Sex: Female
  Weight: 49.89 kg

DRUGS (13)
  1. COUMADIN [Suspect]
     Indication: DEEP VEIN THROMBOSIS
     Route: 048
     Dates: start: 20120518, end: 201207
  2. DIFLUCAN [Concomitant]
  3. FERROUS GLUCONATE [Concomitant]
  4. FOSAMAX [Concomitant]
  5. HYDROCODONE + ACETAMINOPHEN [Concomitant]
     Dosage: 1DF=5MG+325MG
  6. LEVOTHYROID [Concomitant]
  7. NYSTATIN [Concomitant]
     Dosage: 1DF=2 TSP 100000UNITS/ML
  8. OMEPRAZOLE [Concomitant]
  9. AMITRIPTYLINE+CHLORDIAZEPOXIDE [Concomitant]
  10. CARAFATE [Concomitant]
  11. SPIRONOLACTONE [Concomitant]
  12. TRIAMCINOLONE ACETONIDE [Concomitant]
     Route: 061
  13. VITAMIN D [Concomitant]
     Dosage: 1DF=50000INT/UNITS

REACTIONS (1)
  - Treatment noncompliance [Unknown]
